FAERS Safety Report 5159686-9 (Version None)
Quarter: 2006Q4

REPORT INFORMATION
  Report Type: 
  Country: None (occurrence: None)
  Receive Date: 20061129
  Receipt Date: 20061120
  Transmission Date: 20070319
  Serious: Yes (Hospitalization)
  Sender: FDA-Public Use
  Company Number: FR-JNJFOC-20061003561

PATIENT
  Sex: Female

DRUGS (7)
  1. RISPERDAL CONSTA [Suspect]
     Route: 030
  2. RISPERDAL CONSTA [Suspect]
     Route: 030
  3. RISPERDAL CONSTA [Suspect]
     Indication: MAJOR DEPRESSION
     Route: 030
  4. RISPERDAL [Concomitant]
     Indication: PSYCHOTIC DISORDER
     Route: 048
  5. LOXAPAC [Concomitant]
     Route: 065
  6. DEPAKOTE [Concomitant]
     Route: 065
  7. LEPTICUR [Concomitant]
     Route: 065

REACTIONS (1)
  - ACCIDENTAL OVERDOSE [None]
